FAERS Safety Report 5839422-0 (Version None)
Quarter: 2008Q3

REPORT INFORMATION
  Report Type: 
  Country: None (occurrence: None)
  Receive Date: 20080806
  Receipt Date: 20080728
  Transmission Date: 20090109
  Serious: Yes (Life-Threatening)
  Sender: FDA-Public Use
  Company Number: 2008TJ0181

PATIENT
  Age: 43 Year
  Sex: Male

DRUGS (1)
  1. TWINJECT 0.15 [Suspect]
     Indication: ANAPHYLACTIC REACTION
     Dosage: 0.3 MG, SUBCUTANEOUS/INTRAMUSCULARY
     Route: 058
     Dates: start: 20080719, end: 20080719

REACTIONS (4)
  - CONTUSION [None]
  - DRUG ADMINISTRATION ERROR [None]
  - INCORRECT DOSE ADMINISTERED [None]
  - WRONG TECHNIQUE IN DRUG USAGE PROCESS [None]
